FAERS Safety Report 19904007 (Version 1)
Quarter: 2021Q4

REPORT INFORMATION
  Report Type: Spontaneous
  Country: DE (occurrence: DE)
  Receive Date: 20211001
  Receipt Date: 20211001
  Transmission Date: 20220303
  Serious: Yes (Other)
  Sender: FDA-Public Use
  Company Number: None

PATIENT
  Age: 83 Year
  Sex: Female
  Weight: 96 kg

DRUGS (1)
  1. BEMPEDOIC ACID\EZETIMIBE [Suspect]
     Active Substance: BEMPEDOIC ACID\EZETIMIBE
     Indication: Hypercholesterolaemia
     Dosage: 180 MG/10 MG, QD
     Route: 048
     Dates: start: 20210210, end: 20210305

REACTIONS (2)
  - Insomnia [Recovered/Resolved]
  - Nocturnal dyspnoea [Recovered/Resolved]

NARRATIVE: CASE EVENT DATE: 20210210
